FAERS Safety Report 12207011 (Version 2)
Quarter: 2016Q2

REPORT INFORMATION
  Report Type: Spontaneous
  Country: US (occurrence: US)
  Receive Date: 20160324
  Receipt Date: 20160429
  Transmission Date: 20160815
  Serious: No
  Sender: FDA-Public Use
  Company Number: US-JNJFOC-20160217701

PATIENT
  Sex: Female

DRUGS (1)
  1. FENTANYL TRANSDERMAL SYSTEM [Suspect]
     Active Substance: FENTANYL
     Indication: PAIN
     Route: 062

REACTIONS (7)
  - Withdrawal syndrome [Unknown]
  - Menopause [Unknown]
  - Drug ineffective [Unknown]
  - Retching [Unknown]
  - Hyperhidrosis [Unknown]
  - Detoxification [Unknown]
  - Nausea [Unknown]
